FAERS Safety Report 20910978 (Version 2)
Quarter: 2022Q2

REPORT INFORMATION
  Report Type: Spontaneous
  Country: JP (occurrence: JP)
  Receive Date: 20220603
  Receipt Date: 20220609
  Transmission Date: 20220721
  Serious: Yes (Hospitalization)
  Sender: FDA-Public Use
  Company Number: JP-MYLANLABS-2022M1041949

PATIENT
  Age: 65 Year
  Sex: Male

DRUGS (12)
  1. CARBOPLATIN [Suspect]
     Active Substance: CARBOPLATIN
     Indication: Adult T-cell lymphoma/leukaemia
     Dosage: AS A PART OF VECP REGIMEN
  2. CISPLATIN [Suspect]
     Active Substance: CISPLATIN
     Indication: Adult T-cell lymphoma/leukaemia
     Dosage: AS PART OF GDP REGIMEN
  3. CYCLOPHOSPHAMIDE [Suspect]
     Active Substance: CYCLOPHOSPHAMIDE
     Indication: Adult T-cell lymphoma/leukaemia
     Dosage: AS A PART OF VCAP REGIMEN
  4. DEXAMETHASONE [Suspect]
     Active Substance: DEXAMETHASONE
     Indication: Adult T-cell lymphoma/leukaemia
     Dosage: AS PART OF GDP REGIMEN
  5. ADRIAMYCIN [Suspect]
     Active Substance: DOXORUBICIN HYDROCHLORIDE
     Indication: Adult T-cell lymphoma/leukaemia
     Dosage: AS A PART OF VCAP AND AMP REGIMEN
  6. ETOPOSIDE [Suspect]
     Active Substance: ETOPOSIDE
     Indication: Adult T-cell lymphoma/leukaemia
     Dosage: AS A PART OF VECP REGIMEN
  7. GEMCITABINE [Suspect]
     Active Substance: GEMCITABINE
     Indication: Adult T-cell lymphoma/leukaemia
     Dosage: AS PART OF GDP REGIMEN
  8. MOGAMULIZUMAB [Suspect]
     Active Substance: MOGAMULIZUMAB
     Indication: Adult T-cell lymphoma/leukaemia
  9. PREDNISONE [Suspect]
     Active Substance: PREDNISONE
     Indication: Adult T-cell lymphoma/leukaemia
     Dosage: AS A PART OF VCAP, VECP AND AMP REGIMEN
  10. RANIMUSTINE [Suspect]
     Active Substance: RANIMUSTINE
     Indication: Adult T-cell lymphoma/leukaemia
     Dosage: AS A PART OF AMP REGIMEN
  11. VINCRISTINE [Suspect]
     Active Substance: VINCRISTINE
     Indication: Adult T-cell lymphoma/leukaemia
     Dosage: AS A PART OF VCAP REGIMEN
  12. VINDESINE [Suspect]
     Active Substance: VINDESINE
     Indication: Adult T-cell lymphoma/leukaemia
     Dosage: AS A PART OF VECP REGIMEN

REACTIONS (1)
  - Drug ineffective [Unknown]
